FAERS Safety Report 18025646 (Version 1)
Quarter: 2020Q3

REPORT INFORMATION
  Report Type: Spontaneous
  Country: CH (occurrence: CH)
  Receive Date: 20200715
  Receipt Date: 20200715
  Transmission Date: 20201103
  Serious: Yes (Other)
  Sender: FDA-Public Use
  Company Number: CH-MYLANLABS-2020M1062033

PATIENT
  Sex: Male

DRUGS (1)
  1. TOBI PODHALER [Suspect]
     Active Substance: TOBRAMYCIN
     Indication: PRIMARY CILIARY DYSKINESIA
     Dosage: 4 CAPSULES TWICE PER DAY WITH A CYCLE OF 28 DAYS AND WITH A PAUSE OF 28 DAYS
     Dates: start: 201905, end: 202003

REACTIONS (2)
  - Off label use [Recovered/Resolved]
  - Bronchial obstruction [Recovered/Resolved]

NARRATIVE: CASE EVENT DATE: 201905
